FAERS Safety Report 8446097-3 (Version None)
Quarter: 2012Q2

REPORT INFORMATION
  Report Type: 
  Country: None (occurrence: None)
  Receive Date: 20120618
  Receipt Date: 20120614
  Transmission Date: 20120825
  Serious: Yes (Other)
  Sender: FDA-Public Use
  Company Number: JP-PFIZER INC-2012129153

PATIENT
  Age: 58 Year
  Sex: Male

DRUGS (5)
  1. LOXONIN [Suspect]
     Indication: PAIN
     Dosage: UNK
     Route: 048
  2. LYRICA [Suspect]
     Indication: PAIN
     Dosage: 75 MG, 2X/DAY
     Route: 048
     Dates: start: 20120502
  3. CYMBALTA [Concomitant]
     Indication: PAIN
     Dosage: UNK
     Route: 048
  4. FENTANYL [Concomitant]
     Indication: PAIN
     Route: 061
  5. BETAMETHASONE [Suspect]
     Indication: PAIN
     Dosage: UNK

REACTIONS (2)
  - FACE OEDEMA [None]
  - RENAL IMPAIRMENT [None]
